FAERS Safety Report 18156208 (Version 1)
Quarter: 2020Q3

REPORT INFORMATION
  Report Type: Spontaneous
  Country: US (occurrence: US)
  Receive Date: 20200815
  Receipt Date: 20200815
  Transmission Date: 20201103
  Serious: Yes (Hospitalization)
  Sender: FDA-Public Use
  Company Number: None

PATIENT
  Sex: Female

DRUGS (2)
  1. AFINITOR [Suspect]
     Active Substance: EVEROLIMUS
     Indication: OESTROGEN THERAPY
     Route: 048
     Dates: start: 20200730
  2. IRON, PANTOPRAZOLE, ATIVAN [Concomitant]

REACTIONS (2)
  - Hepatic pain [None]
  - Infection [None]
